FAERS Safety Report 10533030 (Version 5)
Quarter: 2015Q1

REPORT INFORMATION
  Report Type: Report from Study
  Country: US (occurrence: US)
  Receive Date: 20141022
  Receipt Date: 20150129
  Transmission Date: 20150720
  Serious: Yes (Hospitalization)
  Sender: FDA-Public Use
  Company Number: US-BIOGENIDEC-2014BI108749

PATIENT
  Age: 50 Year
  Sex: Female

DRUGS (2)
  1. TYSABRI [Suspect]
     Active Substance: NATALIZUMAB
     Indication: MULTIPLE SCLEROSIS
     Route: 042
  2. TYSABRI [Suspect]
     Active Substance: NATALIZUMAB
     Indication: MULTIPLE SCLEROSIS
     Route: 042
     Dates: start: 20110510, end: 20140731

REACTIONS (9)
  - Alopecia [Unknown]
  - Device extrusion [Recovered/Resolved]
  - Bronchopneumonia [Unknown]
  - Benign neoplasm of thyroid gland [Recovered/Resolved]
  - Cholelithiasis [Recovered/Resolved]
  - Drug dose omission [Unknown]
  - Memory impairment [Unknown]
  - Kidney infection [Unknown]
  - Medical device complication [Not Recovered/Not Resolved]

NARRATIVE: CASE EVENT DATE: 2012
